FAERS Safety Report 15704206 (Version 1)
Quarter: 2018Q4

REPORT INFORMATION
  Report Type: Other
  Country: ES (occurrence: ES)
  Receive Date: 20181210
  Receipt Date: 20181210
  Transmission Date: 20190205
  Serious: Yes (Other)
  Sender: FDA-Public Use
  Company Number: ES-APOTEX-2018AP026363

PATIENT
  Age: 19 Year
  Sex: Female

DRUGS (1)
  1. PARACETAMOL [Suspect]
     Active Substance: ACETAMINOPHEN
     Indication: HEADACHE
     Dosage: 10 G, SINGLE (ONE DOSE IN TOTAL)
     Route: 048
     Dates: start: 20180717, end: 20180717

REACTIONS (3)
  - Vomiting [Recovered/Resolved]
  - Incorrect dosage administered [Recovered/Resolved]
  - Abdominal pain upper [Recovered/Resolved]

NARRATIVE: CASE EVENT DATE: 20180717
